FAERS Safety Report 20921443 (Version 1)
Quarter: 2022Q2

REPORT INFORMATION
  Report Type: Report from Study
  Country: US (occurrence: US)
  Receive Date: 20220606
  Receipt Date: 20220606
  Transmission Date: 20220721
  Serious: Yes (Death, Other)
  Sender: FDA-Public Use
  Company Number: US-ROCHE-2992676

PATIENT
  Age: 57 Year
  Sex: Female

DRUGS (25)
  1. ERLOTINIB [Suspect]
     Active Substance: ERLOTINIB
     Indication: Product used for unknown indication
     Dosage: UNK UNK, UNKNOWN FREQ.
     Route: 048
  2. XELODA [Suspect]
     Active Substance: CAPECITABINE
     Indication: Non-small cell lung cancer
     Dosage: 500 MG, OTHER (3 TABLETS MOUTH 2 TIMES DAILY FOR HER-2+NSCLC 3 TABLETS MOUTH TWICE A DAY 2 WEEK)
     Route: 048
     Dates: start: 19621111
  3. XELODA [Suspect]
     Active Substance: CAPECITABINE
     Indication: Metastases to meninges
     Dosage: 1000 MG/M2, OTHER (TWICE A DAY, DAYS 1-14/21 DAYS)
     Route: 048
  4. XELODA [Suspect]
     Active Substance: CAPECITABINE
     Indication: Brain cancer metastatic
  5. XELODA [Suspect]
     Active Substance: CAPECITABINE
     Indication: Lung carcinoma cell type unspecified stage I
  6. XELODA [Suspect]
     Active Substance: CAPECITABINE
     Indication: Metastatic neoplasm
  7. XELODA [Suspect]
     Active Substance: CAPECITABINE
     Indication: Breast cancer metastatic
     Dosage: UNK UNK, UNKNOWN FREQ.
     Route: 065
  8. XELODA [Suspect]
     Active Substance: CAPECITABINE
     Indication: Metastases to meninges
     Dosage: UNK UNK, UNKNOWN FREQ.
     Route: 065
  9. XELODA [Suspect]
     Active Substance: CAPECITABINE
     Indication: Metastatic neoplasm
     Dosage: UNK UNK, UNKNOWN FREQ.
     Route: 065
  10. XELODA [Suspect]
     Active Substance: CAPECITABINE
     Indication: Brain cancer metastatic
  11. XELODA [Suspect]
     Active Substance: CAPECITABINE
     Indication: Lung carcinoma cell type unspecified stage I
  12. AVASTIN [Suspect]
     Active Substance: BEVACIZUMAB
     Indication: Product used for unknown indication
     Route: 065
  13. TRASTUZUMAB [Suspect]
     Active Substance: TRASTUZUMAB
     Indication: Product used for unknown indication
     Dosage: UNK UNK, UNKNOWN FREQ.
     Route: 065
  14. ASCORBIC ACID [Concomitant]
     Active Substance: ASCORBIC ACID
     Indication: Product used for unknown indication
     Dosage: UNK UNK, UNKNOWN FREQ.
     Route: 065
  15. COLLAGEN [Concomitant]
     Active Substance: COLLAGEN
     Indication: Product used for unknown indication
     Dosage: UNK UNK, UNKNOWN FREQ.
     Route: 065
  16. TRIMETAZIDINE [Concomitant]
     Active Substance: TRIMETAZIDINE
     Indication: Product used for unknown indication
     Dosage: UNK UNK, UNKNOWN FREQ.
     Route: 065
  17. METHOTREXATE [Concomitant]
     Active Substance: METHOTREXATE
     Indication: Product used for unknown indication
     Dosage: UNK UNK, UNKNOWN FREQ.
     Route: 065
  18. LAPATINIB [Concomitant]
     Active Substance: LAPATINIB
     Indication: Product used for unknown indication
     Dosage: 1250, ONCE DAILY
     Route: 065
  19. DECADRON [Concomitant]
     Active Substance: DEXAMETHASONE
     Indication: Product used for unknown indication
     Route: 065
  20. OXYCODONE [Concomitant]
     Active Substance: OXYCODONE
     Indication: Product used for unknown indication
     Dosage: UNK UNK, UNKNOWN FREQ.
     Route: 065
  21. SODIUM CHLORIDE [Concomitant]
     Active Substance: SODIUM CHLORIDE
     Indication: Product used for unknown indication
     Dosage: UNK UNK, UNKNOWN FREQ.
     Route: 065
  22. ACETAMINOPHEN [Concomitant]
     Active Substance: ACETAMINOPHEN
     Indication: Product used for unknown indication
     Dosage: UNK UNK, UNKNOWN FREQ.
     Route: 065
  23. VITAMIN D3 [Concomitant]
     Active Substance: CHOLECALCIFEROL
     Indication: Product used for unknown indication
     Dosage: UNK UNK, UNKNOWN FREQ.
     Route: 065
  24. COD LIVER OIL [Concomitant]
     Active Substance: COD LIVER OIL
     Indication: Product used for unknown indication
     Dosage: UNK UNK, UNKNOWN FREQ.
     Route: 065
  25. ETOPOSIDE [Concomitant]
     Active Substance: ETOPOSIDE
     Indication: Product used for unknown indication
     Dosage: UNK UNK, UNKNOWN FREQ.
     Route: 065

REACTIONS (35)
  - Death [Fatal]
  - Lung cancer metastatic [Fatal]
  - Metastasis [Unknown]
  - Thrombocytopenia [Unknown]
  - Neuropathy peripheral [Unknown]
  - Nephropathy toxic [Unknown]
  - Hypoaesthesia [Unknown]
  - Condition aggravated [Unknown]
  - Balance disorder [Unknown]
  - Condition aggravated [Unknown]
  - Neck pain [Unknown]
  - Musculoskeletal stiffness [Unknown]
  - Condition aggravated [Unknown]
  - Dysphagia [Unknown]
  - Muscular weakness [Unknown]
  - Condition aggravated [Unknown]
  - Anxiety [Unknown]
  - Depression [Unknown]
  - Fatigue [Unknown]
  - Alopecia [Unknown]
  - Back pain [Unknown]
  - Arthralgia [Unknown]
  - Lumbar radiculopathy [Unknown]
  - Musculoskeletal stiffness [Unknown]
  - Diarrhoea [Unknown]
  - Headache [Unknown]
  - Rash [Unknown]
  - Oedema peripheral [Unknown]
  - Vomiting [Unknown]
  - Dry skin [Unknown]
  - Mucosal inflammation [Unknown]
  - Nausea [Unknown]
  - Central nervous system lesion [Unknown]
  - Ill-defined disorder [Unknown]
  - Off label use [Unknown]

NARRATIVE: CASE EVENT DATE: 20191121
